FAERS Safety Report 6357122-8 (Version None)
Quarter: 2009Q3

REPORT INFORMATION
  Report Type: 
  Country: None (occurrence: None)
  Receive Date: 20090910
  Receipt Date: 20090825
  Transmission Date: 20100115
  Serious: Yes (Death, Hospitalization)
  Sender: FDA-Public Use
  Company Number: 2008AL012001

PATIENT
  Age: 66 Year
  Sex: Male

DRUGS (64)
  1. DIGOXIN [Suspect]
     Dosage: 0.125MG, DAILY, PO
     Route: 048
     Dates: start: 20080401
  2. XANAX [Concomitant]
  3. NORCO [Concomitant]
  4. ASPIRIN [Concomitant]
  5. PLAVIX [Concomitant]
  6. DECADRON [Concomitant]
  7. CARDIZEM [Concomitant]
  8. LASIX [Concomitant]
  9. LEVAQUIN [Concomitant]
  10. OXYCONTIN [Concomitant]
  11. PROTONIX [Concomitant]
  12. EFFEXOR [Concomitant]
  13. COZAAR [Concomitant]
  14. LOPRESSOR [Concomitant]
  15. LIPITOR [Concomitant]
  16. PROPOXYPHENE NAPSYLATE [Concomitant]
  17. TOPROL-XL [Concomitant]
  18. HYZAAR [Concomitant]
  19. ALPRAZOLAM [Concomitant]
  20. HYZAAR [Concomitant]
  21. MIRALAX [Concomitant]
  22. DOK [Concomitant]
  23. ISOSORB [Concomitant]
  24. SULFADIAZINE AND TRIMETHOPRIM [Concomitant]
  25. HYOSCYAMINE [Concomitant]
  26. TOPROL-XL [Concomitant]
  27. HYDROCODONE [Concomitant]
  28. CEPHALEXIN [Concomitant]
  29. VISICOL [Concomitant]
  30. OXYBUTYNIN CHLORIDE [Concomitant]
  31. NITROSTAT [Concomitant]
  32. ALBUTEROL [Concomitant]
  33. DUONEB [Concomitant]
  34. ASPIRIN [Concomitant]
  35. EFFEXOR [Concomitant]
  36. DOPAMINE HCL [Concomitant]
  37. VANCOMYCIN [Concomitant]
  38. CELTRIAXONE [Concomitant]
  39. LOVENOX [Concomitant]
  40. NITROGLYCERIN [Concomitant]
  41. MORPHINE SULFATE INJ [Concomitant]
  42. ALBUTEROL [Concomitant]
  43. IPRATROPIUM BROMIDE [Concomitant]
  44. METOPROLOL TARTRATE [Concomitant]
  45. HYDROCODONE [Concomitant]
  46. DEXAMETHASONE [Concomitant]
  47. ALPRAZOLAM [Concomitant]
  48. SODIUM CHLORIDE [Concomitant]
  49. ZOSYN [Concomitant]
  50. MAGNESIUM OXIDE [Concomitant]
  51. TOPROL-XL [Concomitant]
  52. DILTIAZEM [Concomitant]
  53. FAMOTIDINE [Concomitant]
  54. MIRALAX [Concomitant]
  55. CALCIUM [Concomitant]
  56. SENNOSIDE [Concomitant]
  57. SULCRAFATE [Concomitant]
  58. VENLAFAXINE [Concomitant]
  59. MORPHINE [Concomitant]
  60. PULMICORT-100 [Concomitant]
  61. ALBUTEROL [Concomitant]
  62. XOPENEX [Concomitant]
  63. DUONEB [Concomitant]
  64. ISOSORBIDE [Concomitant]

REACTIONS (15)
  - ABDOMINAL PAIN [None]
  - ACUTE CORONARY SYNDROME [None]
  - ASTHENIA [None]
  - BACK PAIN [None]
  - BALANCE DISORDER [None]
  - BLOOD PRESSURE ABNORMAL [None]
  - CARDIAC DISORDER [None]
  - ECONOMIC PROBLEM [None]
  - MEMORY IMPAIRMENT [None]
  - METASTATIC NEOPLASM [None]
  - MULTIPLE INJURIES [None]
  - MYOCARDIAL INFARCTION [None]
  - PAIN IN EXTREMITY [None]
  - SCIATICA [None]
  - URETERIC CANCER [None]
